FAERS Safety Report 10898212 (Version 1)
Quarter: 2015Q1

REPORT INFORMATION
  Report Type: Spontaneous
  Country: US (occurrence: US)
  Receive Date: 20150309
  Receipt Date: 20150309
  Transmission Date: 20150721
  Serious: No
  Sender: FDA-Public Use
  Company Number: US-ABBVIE-15P-163-1344358-00

PATIENT
  Age: 26 Year
  Sex: Female
  Weight: 59.02 kg

DRUGS (5)
  1. LUPRON DEPOT [Suspect]
     Active Substance: LEUPROLIDE ACETATE
     Indication: AUTOIMMUNE DERMATITIS
     Route: 030
     Dates: start: 201404, end: 201404
  2. HYDROXYZINE [Concomitant]
     Active Substance: HYDROXYZINE\HYDROXYZINE HYDROCHLORIDE
     Indication: URTICARIA
  3. HYDROXYZINE [Concomitant]
     Active Substance: HYDROXYZINE\HYDROXYZINE HYDROCHLORIDE
     Indication: AUTOIMMUNE DISORDER
  4. ACYCLOVIR. [Concomitant]
     Active Substance: ACYCLOVIR
     Indication: GENITAL HERPES
     Dates: start: 2014, end: 2014
  5. ACYCLOVIR. [Concomitant]
     Active Substance: ACYCLOVIR
     Dates: start: 2015

REACTIONS (2)
  - Headache [Recovered/Resolved]
  - Failed induction of labour [Recovered/Resolved]

NARRATIVE: CASE EVENT DATE: 201408
